FAERS Safety Report 22200388 (Version 1)
Quarter: 2023Q2

REPORT INFORMATION
  Report Type: Spontaneous
  Country: RS (occurrence: RS)
  Receive Date: 20230412
  Receipt Date: 20230412
  Transmission Date: 20230722
  Serious: Yes (Hospitalization)
  Sender: FDA-Public Use
  Company Number: RS-BAYER-2022A037542

PATIENT
  Age: 77 Year
  Sex: Female

DRUGS (5)
  1. XARELTO [Suspect]
     Active Substance: RIVAROXABAN
     Indication: Embolism venous
     Dosage: 15 MG, ONCE
     Route: 048
     Dates: start: 202111
  2. BISOPROLOL FUMARATE [Concomitant]
     Active Substance: BISOPROLOL FUMARATE
     Indication: Fibrin D dimer increased
     Dosage: 1 TABLET IN THE MORNING
  3. SPIRONOLACTONE [Concomitant]
     Active Substance: SPIRONOLACTONE
     Dosage: 25 MG 1 TABLET
  4. MONOPRIL [Concomitant]
     Active Substance: FOSINOPRIL SODIUM
     Dosage: 10 MG QTR OF THE TABLET IN THE EVENING
  5. ATORVASTATIN CALCIUM [Concomitant]
     Active Substance: ATORVASTATIN CALCIUM
     Dosage: 10 MG 1 TABLET EVERY OTHER EVENING

REACTIONS (5)
  - Pulmonary embolism [Recovering/Resolving]
  - Asphyxia [Recovering/Resolving]
  - Chest pain [Recovering/Resolving]
  - Palpitations [Recovering/Resolving]
  - Off label use [Unknown]

NARRATIVE: CASE EVENT DATE: 20211201
